FAERS Safety Report 12200921 (Version 1)
Quarter: 2016Q1

REPORT INFORMATION
  Report Type: Spontaneous
  Country: US (occurrence: US)
  Receive Date: 20160322
  Receipt Date: 20160322
  Transmission Date: 20160526
  Serious: No
  Sender: FDA-Public Use
  Company Number: US-GLAXOSMITHKLINE-US2016GSK037398

PATIENT
  Age: 61 Year
  Sex: Male

DRUGS (1)
  1. TANZEUM [Suspect]
     Active Substance: ALBIGLUTIDE
     Indication: TYPE 2 DIABETES MELLITUS
     Dosage: 30 MG, WE
     Route: 042

REACTIONS (8)
  - Device leakage [Unknown]
  - Accidental exposure to product [Unknown]
  - Drug dose omission [Unknown]
  - Device use error [Unknown]
  - Vomiting [Recovered/Resolved]
  - Injection site erythema [Unknown]
  - Injection site pruritus [Unknown]
  - Nausea [Recovered/Resolved]

NARRATIVE: CASE EVENT DATE: 201512
